FAERS Safety Report 6448592-5 (Version None)
Quarter: 2009Q4

REPORT INFORMATION
  Report Type: 
  Country: None (occurrence: None)
  Receive Date: 20091120
  Receipt Date: 20091111
  Transmission Date: 20100525
  Serious: Yes (Other)
  Sender: FDA-Public Use
  Company Number: US-AMGEN-QUU374080

PATIENT
  Sex: Female

DRUGS (4)
  1. ENBREL [Suspect]
     Indication: RHEUMATOID ARTHRITIS
     Route: 058
     Dates: start: 20090501
  2. ENBREL [Suspect]
     Indication: BEHCET'S SYNDROME
  3. PLAQUENIL [Concomitant]
  4. IMURAN [Concomitant]

REACTIONS (7)
  - EYE DISORDER [None]
  - FATIGUE [None]
  - HEADACHE [None]
  - MOUTH ULCERATION [None]
  - NAUSEA [None]
  - RHEUMATOID ARTHRITIS [None]
  - VAGINAL ULCERATION [None]
